FAERS Safety Report 18180556 (Version 1)
Quarter: 2020Q3

REPORT INFORMATION
  Report Type: Spontaneous
  Country: CA (occurrence: CA)
  Receive Date: 20200821
  Receipt Date: 20200821
  Transmission Date: 20201103
  Serious: Yes (Death, Other)
  Sender: FDA-Public Use
  Company Number: CA-PFIZER INC-2017266575

PATIENT
  Age: 65 Year
  Sex: Female

DRUGS (4)
  1. FASLODEX [Concomitant]
     Active Substance: FULVESTRANT
     Dosage: UNK
  2. TUMS ANTACID [Concomitant]
  3. IBRANCE [Suspect]
     Active Substance: PALBOCICLIB
     Indication: BREAST CANCER METASTATIC
     Dosage: 125 MG, 21 DAYS ON, 7 DAYS OFF
     Route: 048
     Dates: start: 20170302
  4. IRON [Concomitant]
     Active Substance: IRON

REACTIONS (1)
  - Death [Fatal]

NARRATIVE: CASE EVENT DATE: 202002
